FAERS Safety Report 5044894-8 (Version None)
Quarter: 2006Q3

REPORT INFORMATION
  Report Type: 
  Country: None (occurrence: None)
  Receive Date: 20060705
  Receipt Date: 20060621
  Transmission Date: 20061208
  Serious: Yes (Other)
  Sender: FDA-Public Use
  Company Number: TRP_0762_2006

PATIENT
  Age: 46 Year
  Sex: Male

DRUGS (5)
  1. RIBASPHERE [Suspect]
     Indication: HEPATITIS C
     Dosage: DF PO
     Route: 048
     Dates: start: 20060303
  2. PEG-INTRON              /PEGINTERFERON ALPHA-2B [Suspect]
     Indication: HEPATITIS C
     Dosage: DF SC
     Route: 058
     Dates: start: 20060303
  3. PROPRANOLOL [Concomitant]
  4. HYROXYZINE HYDROCHLORIDE [Concomitant]
  5. SEROQUEL [Concomitant]

REACTIONS (8)
  - DEHYDRATION [None]
  - FATIGUE [None]
  - INJECTION SITE ERYTHEMA [None]
  - NAUSEA [None]
  - PNEUMONIA [None]
  - RED BLOOD CELL COUNT DECREASED [None]
  - SKIN DISORDER [None]
  - SWELLING FACE [None]
